FAERS Safety Report 9157647 (Version 1)
Quarter: 2013Q1

REPORT INFORMATION
  Report Type: Spontaneous
  Country: IT (occurrence: None)
  Receive Date: 20130212
  Receipt Date: 20130212
  Transmission Date: 20140127
  Serious: Yes (Hospitalization)
  Sender: FDA-Public Use
  Company Number: 1590809

PATIENT
  Age: 47 Year
  Sex: Female

DRUGS (4)
  1. METHOTREXATE [Suspect]
     Indication: BREAST CANCER
     Dosage: 65 MG MILLIGRAM(S) (CYCLICAL) INTRAVENOUS (NOT OTHERWISE SPECIFIED)
     Route: 042
     Dates: start: 20121022, end: 20121029
  2. ENDOXAN [Suspect]
     Indication: BREAST CANCER
     Dosage: 970 MG MILLIGRAM(S), CYCLICAL, INTRAVENOUS
     Route: 042
     Dates: start: 20121022, end: 20121029
  3. FLUOROURACIL [Suspect]
     Indication: BREAST CANCER
     Dosage: 970 MG MILLIGRAM(S) (YCLICAL) INTRAVENOUS )NOT OTHERWISE SPECIFIED)
     Route: 042
     Dates: start: 20121022, end: 20121029
  4. KYTRIL [Concomitant]

REACTIONS (6)
  - Febrile neutropenia [None]
  - Stomatitis [None]
  - Nausea [None]
  - Diarrhoea [None]
  - Haemoglobin decreased [None]
  - White blood cell count decreased [None]
